FAERS Safety Report 5955271-7 (Version None)
Quarter: 2008Q4

REPORT INFORMATION
  Report Type: 
  Country: None (occurrence: None)
  Receive Date: 20081117
  Receipt Date: 20081110
  Transmission Date: 20090506
  Serious: Yes (Other)
  Sender: FDA-Public Use
  Company Number: PHEH2008US10106

PATIENT
  Sex: Male

DRUGS (3)
  1. EXFORGE [Suspect]
     Indication: HYPERTENSION
     Dosage: 10/320 MG QD
  2. EXFORGE [Suspect]
     Dosage: 5/160 MG QD
  3. LOTREL [Suspect]
     Indication: HYPERTENSION
     Dosage: 10/20 MG

REACTIONS (1)
  - SYNCOPE [None]
